FAERS Safety Report 21529412 (Version 1)
Quarter: 2022Q4

REPORT INFORMATION
  Report Type: Spontaneous
  Country: SG (occurrence: SG)
  Receive Date: 20221031
  Receipt Date: 20221031
  Transmission Date: 20230113
  Serious: Yes (Other)
  Sender: FDA-Public Use
  Company Number: SG-BAYER-2022P019429

PATIENT

DRUGS (1)
  1. VERICIGUAT HYDROCHLORIDE [Suspect]
     Active Substance: VERICIGUAT HYDROCHLORIDE
     Dosage: 5 MG

REACTIONS (1)
  - Blood pressure systolic decreased [Unknown]
